FAERS Safety Report 11898641 (Version 1)
Quarter: 2016Q1

REPORT INFORMATION
  Report Type: Spontaneous
  Country: US (occurrence: None)
  Receive Date: 20160107
  Receipt Date: 20160107
  Transmission Date: 20160526
  Serious: Yes (Other)
  Sender: FDA-Public Use
  Company Number: None

PATIENT
  Age: 51 Year
  Sex: Female
  Weight: 58.97 kg

DRUGS (1)
  1. CIPROFLOXACIN. [Suspect]
     Active Substance: CIPROFLOXACIN
     Indication: URINARY TRACT INFECTION
     Route: 048
     Dates: start: 20151201, end: 20151203

REACTIONS (6)
  - Gait disturbance [None]
  - Activities of daily living impaired [None]
  - Mental impairment [None]
  - Tendon disorder [None]
  - Arthralgia [None]
  - Joint stiffness [None]

NARRATIVE: CASE EVENT DATE: 20151201
